FAERS Safety Report 4504718-1 (Version None)
Quarter: 2004Q4

REPORT INFORMATION
  Report Type: 
  Country: None (occurrence: None)
  Receive Date: 20040927
  Receipt Date: 20040712
  Transmission Date: 20050328
  Serious: No
  Sender: FDA-Public Use
  Company Number: USA040772371

PATIENT
  Age: 53 Year
  Sex: Female
  Weight: 70 kg

DRUGS (5)
  1. STRATTERA [Suspect]
     Indication: ATTENTION DEFICIT/HYPERACTIVITY DISORDER
     Dosage: 80 MG/1 IN THE MORNING
     Dates: start: 20030101
  2. MULTIVITAMIN [Concomitant]
  3. ADDERALL 20 [Concomitant]
  4. ADDERALL 10 [Concomitant]
  5. NEXIUM [Concomitant]

REACTIONS (4)
  - DRUG INEFFECTIVE [None]
  - IRRITABILITY [None]
  - SOCIAL AVOIDANT BEHAVIOUR [None]
  - WEIGHT DECREASED [None]
